FAERS Safety Report 17211618 (Version 1)
Quarter: 2019Q4

REPORT INFORMATION
  Report Type: Report from Study
  Country: None (occurrence: US)
  Receive Date: 20191229
  Receipt Date: 20191229
  Transmission Date: 20200122
  Serious: Yes (Other)
  Sender: FDA-Public Use
  Company Number: US-ABBVIE-19K-163-2617699-00

PATIENT
  Age: 56 Year
  Sex: Male

DRUGS (4)
  1. HUMIRA [Suspect]
     Active Substance: ADALIMUMAB
     Route: 058
     Dates: start: 20191215
  2. HUMIRA [Suspect]
     Active Substance: ADALIMUMAB
     Dosage: DAY 29
     Route: 058
     Dates: start: 20190117, end: 201912
  3. HUMIRA [Suspect]
     Active Substance: ADALIMUMAB
     Indication: CROHN^S DISEASE
     Dosage: DAY 15
     Route: 058
     Dates: start: 20190103, end: 20190103
  4. HUMIRA [Suspect]
     Active Substance: ADALIMUMAB
     Indication: COLITIS ULCERATIVE
     Dosage: DAY 1
     Route: 058
     Dates: start: 20181220, end: 20181220

REACTIONS (13)
  - Hyperhidrosis [Not Recovered/Not Resolved]
  - Diarrhoea [Recovering/Resolving]
  - Cardiac disorder [Not Recovered/Not Resolved]
  - Insomnia [Unknown]
  - Polyp [Unknown]
  - Constipation [Unknown]
  - Anxiety [Unknown]
  - Abdominal pain [Recovering/Resolving]
  - Rectal haemorrhage [Not Recovered/Not Resolved]
  - Joint swelling [Unknown]
  - Malaise [Unknown]
  - Dyspepsia [Recovering/Resolving]
  - Flatulence [Recovering/Resolving]

NARRATIVE: CASE EVENT DATE: 2018
